FAERS Safety Report 19583083 (Version 1)
Quarter: 2021Q3

REPORT INFORMATION
  Report Type: Spontaneous
  Country: US (occurrence: US)
  Receive Date: 20210720
  Receipt Date: 20210720
  Transmission Date: 20211014
  Serious: No
  Sender: FDA-Public Use
  Company Number: None

PATIENT
  Age: 66 Year
  Sex: Male
  Weight: 108 kg

DRUGS (1)
  1. ATORVASTATIN (ASTORVASTATIIN CA 10MG TAB) [Suspect]
     Active Substance: ATORVASTATIN CALCIUM
     Route: 048
     Dates: start: 20190618, end: 20200420

REACTIONS (1)
  - Dizziness [None]

NARRATIVE: CASE EVENT DATE: 20200420
